FAERS Safety Report 6336022-3 (Version None)
Quarter: 2009Q3

REPORT INFORMATION
  Report Type: 
  Country: None (occurrence: None)
  Receive Date: 20090828
  Receipt Date: 20090818
  Transmission Date: 20100115
  Serious: Yes (Other)
  Sender: FDA-Public Use
  Company Number: ADR13852009

PATIENT
  Age: 56 Year
  Sex: Female

DRUGS (1)
  1. CITALOPRAM HYDROBROMIDE [Suspect]
     Dosage: 20MG ORAL
     Route: 048

REACTIONS (10)
  - AMNESIA [None]
  - ANORGASMIA [None]
  - COGNITIVE DISORDER [None]
  - CONSTIPATION [None]
  - DIARRHOEA [None]
  - DISTURBANCE IN ATTENTION [None]
  - OEDEMA [None]
  - PAIN [None]
  - POLLAKIURIA [None]
  - WEIGHT INCREASED [None]
